FAERS Safety Report 20062120 (Version 1)
Quarter: 2021Q4

REPORT INFORMATION
  Report Type: Spontaneous
  Country: CN (occurrence: CN)
  Receive Date: 20211112
  Receipt Date: 20211112
  Transmission Date: 20220303
  Serious: Yes (Death, Life-Threatening, Hospitalization)
  Sender: FDA-Public Use
  Company Number: CN-PFIZER INC-202101484397

PATIENT
  Age: 56 Year
  Sex: Male
  Weight: 40 kg

DRUGS (6)
  1. LINEZOLID [Suspect]
     Active Substance: LINEZOLID
     Indication: Small intestine carcinoma
     Dosage: 0.6 G, 2X/DAY
     Route: 041
     Dates: start: 20210831, end: 20210907
  2. LINEZOLID [Suspect]
     Active Substance: LINEZOLID
     Indication: Anti-infective therapy
  3. LEVOFLOXACIN/SODIUM CHLORIDE [Concomitant]
     Indication: Small intestine carcinoma
     Dosage: 0.5 G, 1X/DAY
     Route: 041
     Dates: start: 20210831, end: 20210908
  4. FLUCONAZOLE [Concomitant]
     Active Substance: FLUCONAZOLE
     Indication: Small intestine carcinoma
     Dosage: 0.2 G, 1X/DAY
     Route: 041
     Dates: start: 20210831, end: 20210909
  5. SODIUM CHLORIDE [Concomitant]
     Active Substance: SODIUM CHLORIDE
     Indication: Small intestine carcinoma
     Dosage: 100 ML, 4X/DAY
     Route: 041
     Dates: start: 20210831, end: 20210908
  6. PIPERACILLIN SODIUM\TAZOBACTAM SODIUM [Concomitant]
     Active Substance: PIPERACILLIN SODIUM\TAZOBACTAM SODIUM
     Indication: Small intestine carcinoma
     Dosage: 4.5 G, 4X/DAY
     Route: 041
     Dates: start: 20210831, end: 20210908

REACTIONS (1)
  - Platelet count decreased [Fatal]

NARRATIVE: CASE EVENT DATE: 20210907
